FAERS Safety Report 7511774-5 (Version None)
Quarter: 2011Q2

REPORT INFORMATION
  Report Type: 
  Country: None (occurrence: None)
  Receive Date: 20110519
  Receipt Date: 20110504
  Transmission Date: 20111010
  Serious: Yes (Death, Life-Threatening)
  Sender: FDA-Public Use
  Company Number: AUR-APL-2010-02814

PATIENT
  Age: 61 Year
  Sex: Male

DRUGS (24)
  1. MIRTAZAPINE [Suspect]
     Indication: DEPRESSION
     Dosage: 15MG, DAILY;
     Dates: start: 20101008, end: 20101103
  2. PANTOPRAZOLE [Concomitant]
  3. NORVASC [Concomitant]
  4. NEUPOGEN [Concomitant]
  5. METFORMIN HCL [Suspect]
     Indication: DIABETES MELLITUS
     Dosage: 850MG, TID, ORAL
     Route: 048
     Dates: end: 20101103
  6. ANIDULAFUNGIN, PLACEBO (CODE NOT BROKEN) [Suspect]
     Indication: ASPERGILLOSIS
     Dosage: IV
     Route: 042
     Dates: start: 20101030, end: 20101101
  7. ANIDULAFUNGIN, PLACEBO (CODE NOT BROKEN) [Suspect]
     Indication: ASPERGILLOSIS
     Dosage: IV
     Route: 042
     Dates: start: 20101031
  8. DIPYRONE TAB [Concomitant]
  9. VANCOMYCIN [Concomitant]
  10. ACYCLOVIR [Suspect]
     Indication: PROPHYLAXIS
     Dosage: 400 MG, DAILY, ORAL
     Route: 048
     Dates: start: 20101007, end: 20101103
  11. MEROPENEM [Concomitant]
  12. JONOSTERIL [Concomitant]
  13. METOCLOPRAMIDE [Concomitant]
  14. METOPROLOL TARTRATE [Concomitant]
  15. GRANOCYTE [Concomitant]
  16. VFEND [Suspect]
     Indication: ASPERGILLOSIS
     Dosage: 388MG, BID, IV
     Route: 042
     Dates: start: 20101030, end: 20101103
  17. VFEND [Suspect]
     Indication: ASPERGILLOSIS
     Dosage: 200MG, BID, ORAL
     Route: 048
     Dates: start: 20101103
  18. CLINDAMYCIN [Concomitant]
  19. ACTRAPHANE [Concomitant]
  20. FURORESE [Concomitant]
  21. ALLOPURINOL [Suspect]
     Indication: PROPHYLAXIS
     Dosage: 300MG, DAILY, ORAL
     Route: 048
     Dates: end: 20101103
  22. ALLOPURINOL [Suspect]
     Indication: HYPERURICAEMIA
     Dosage: 300MG, DAILY, ORAL
     Route: 048
     Dates: end: 20101103
  23. KALINOR-BRAUSETABLETTEN EFFERVESCENT TABLET [Concomitant]
  24. TAZOBAC [Concomitant]

REACTIONS (5)
  - RENAL FAILURE ACUTE [None]
  - COAGULOPATHY [None]
  - PULMONARY OEDEMA [None]
  - SEPSIS [None]
  - CARDIOVASCULAR DISORDER [None]
